FAERS Safety Report 5127450-2 (Version None)
Quarter: 2006Q4

REPORT INFORMATION
  Report Type: 
  Country: None (occurrence: None)
  Receive Date: 20061010
  Receipt Date: 20060925
  Transmission Date: 20070319
  Serious: Yes (Hospitalization)
  Sender: FDA-Public Use
  Company Number: 2006090090

PATIENT
  Age: 89 Year
  Sex: Male
  Weight: 44 kg

DRUGS (25)
  1. ZYVOX [Suspect]
     Indication: SPONDYLITIS
     Dosage: 1200 MG (600 MG, 2 IN 1 D) INTRAVENOUS (SEE IMAGE)
     Route: 042
     Dates: start: 20060320, end: 20060403
  2. ZYVOX [Suspect]
     Indication: STAPHYLOCOCCAL SEPSIS
     Dosage: 1200 MG (600 MG, 2 IN 1 D) INTRAVENOUS (SEE IMAGE)
     Route: 042
     Dates: start: 20060320, end: 20060403
  3. ZYVOX [Suspect]
     Indication: SPONDYLITIS
     Dosage: 1200 MG (600 MG, 2 IN 1 D) INTRAVENOUS (SEE IMAGE)
     Route: 042
     Dates: start: 20060406, end: 20060417
  4. ZYVOX [Suspect]
     Indication: STAPHYLOCOCCAL SEPSIS
     Dosage: 1200 MG (600 MG, 2 IN 1 D) INTRAVENOUS (SEE IMAGE)
     Route: 042
     Dates: start: 20060406, end: 20060417
  5. ZYVOX [Suspect]
     Indication: STAPHYLOCOCCAL SEPSIS
     Dosage: 1200 MG (600 MG, 2 IN 1 D); ORAL, (SEE IMAGE)
     Route: 048
     Dates: start: 20060404, end: 20060405
  6. ZYVOX [Suspect]
     Indication: STAPHYLOCOCCAL SEPSIS
     Dosage: 1200 MG (600 MG, 2 IN 1 D); ORAL, (SEE IMAGE)
     Route: 048
     Dates: start: 20060418, end: 20060420
  7. VANCOMYCIN [Concomitant]
  8. ADALAT [Concomitant]
  9. CARDENALIN (DOXAZOSIN) [Concomitant]
  10. LASIX [Concomitant]
  11. FERROMIA (FERROUS CITRATE) [Concomitant]
  12. RABEPRAZOLE SODIUM [Concomitant]
  13. MARZULENE S (LEVOGLUTAMIDE, SODIUM GUALENATE) [Concomitant]
  14. HALCION [Concomitant]
  15. PURSENNID (SENNA LEAF) [Concomitant]
  16. URSO 250 [Concomitant]
  17. PRIMPERAN TAB [Concomitant]
  18. DAI-KENCHU-TO [Concomitant]
  19. NITROGLYCERIN [Concomitant]
  20. ALLOPURINOL [Concomitant]
  21. ALOSENN (ACHILLEA, RUBIA ROOT TINCTURE, SENNA FRUIT, SENNA LEAF, TARAX [Concomitant]
  22. LOXONIN (LOXOPROFEN SODIUM) [Concomitant]
  23. HANP (CARPERITIDE) [Concomitant]
  24. SOLITA T (ELECTROLYTES NOS) [Concomitant]
  25. DOPAMINE HCL [Concomitant]

REACTIONS (6)
  - ANAEMIA [None]
  - BONE MARROW FAILURE [None]
  - HYPONATRAEMIA [None]
  - MYELITIS [None]
  - PLATELET COUNT DECREASED [None]
  - WHITE BLOOD CELL COUNT DECREASED [None]
